FAERS Safety Report 9280845 (Version 1)
Quarter: 2013Q2

REPORT INFORMATION
  Report Type: Spontaneous
  Country: US (occurrence: None)
  Receive Date: 20130508
  Receipt Date: 20130508
  Transmission Date: 20140414
  Serious: Yes (Other)
  Sender: FDA-Public Use
  Company Number: None

PATIENT
  Age: 53 Year
  Sex: Male
  Weight: 72.12 kg

DRUGS (1)
  1. ZANAFLEX [Suspect]
     Indication: MUSCLE SPASMS
     Route: 048
     Dates: start: 20130418, end: 20130518

REACTIONS (2)
  - Abdominal distension [None]
  - Activities of daily living impaired [None]
